FAERS Safety Report 8987328 (Version 1)
Quarter: 2012Q4

REPORT INFORMATION
  Report Type: 
  Country: AU (occurrence: AU)
  Receive Date: 20121227
  Receipt Date: 20121227
  Transmission Date: 20130627
  Serious: Yes (Hospitalization)
  Sender: FDA-Public Use
  Company Number: AU-MPIJNJ-2012-03757

PATIENT

DRUGS (2)
  1. VELCADE [Suspect]
     Indication: MULTIPLE MYELOMA
     Dosage: 2.0 mg, UNK
     Route: 042
     Dates: start: 20120120, end: 20120827
  2. DEXAMETHASONE [Suspect]
     Indication: MULTIPLE MYELOMA
     Dosage: 20 mg, Cyclic
     Route: 048
     Dates: start: 20120120, end: 20120828

REACTIONS (2)
  - Pyuria [Recovered/Resolved]
  - Fluid overload [Recovered/Resolved]
